FAERS Safety Report 7898186-X (Version None)
Quarter: 2011Q4

REPORT INFORMATION
  Report Type: 
  Country: None (occurrence: None)
  Receive Date: 20111107
  Receipt Date: 20111026
  Transmission Date: 20120403
  Serious: Yes (Hospitalization)
  Sender: FDA-Public Use
  Company Number: US-GLAXOSMITHKLINE-A0798682A

PATIENT
  Age: 63 Year
  Sex: Male
  Weight: 113.6 kg

DRUGS (5)
  1. CATAPRES [Concomitant]
  2. DIGOXIN [Concomitant]
  3. AVANDIA [Suspect]
     Indication: TYPE 2 DIABETES MELLITUS
     Dosage: 4MG TWICE PER DAY
     Route: 048
     Dates: end: 20070101
  4. VERAPAMIL [Concomitant]
  5. ALTACE [Concomitant]

REACTIONS (7)
  - ARRHYTHMIA [None]
  - ATRIAL FLUTTER [None]
  - HYPOAESTHESIA [None]
  - ATRIAL FIBRILLATION [None]
  - CARDIAC DISORDER [None]
  - CARDIAC FAILURE CONGESTIVE [None]
  - DIZZINESS [None]
